FAERS Safety Report 24595682 (Version 1)
Quarter: 2024Q4

REPORT INFORMATION
  Report Type: Spontaneous
  Country: TR (occurrence: TR)
  Receive Date: 20241109
  Receipt Date: 20241109
  Transmission Date: 20250115
  Serious: Yes (Hospitalization, Other)
  Sender: ABBVIE
  Company Number: TR-ABBVIE-5991878

PATIENT
  Age: 38 Year
  Sex: Female
  Weight: 60 kg

DRUGS (4)
  1. HUMIRA [Suspect]
     Active Substance: ADALIMUMAB
     Indication: Uveitis
     Dosage: FORM STRENGTH: 40 MG
     Route: 058
     Dates: start: 2019, end: 202311
  2. HUMIRA [Suspect]
     Active Substance: ADALIMUMAB
     Dosage: FORM STRENGTH: 40 MG
     Route: 058
     Dates: start: 202311, end: 202405
  3. METHOTREXATE [Concomitant]
     Active Substance: METHOTREXATE
     Indication: Uveitis
     Dosage: STOP DATE TEXT: UNKNOWN
     Dates: start: 2019, end: 2021
  4. ACETAZOLAMIDE [Concomitant]
     Active Substance: ACETAZOLAMIDE
     Indication: Glaucoma
     Dosage: FORM STRENGTH: 250 MG
     Route: 048

REACTIONS (7)
  - Hypoaesthesia [Recovering/Resolving]
  - Arthritis [Recovering/Resolving]
  - Neoplasm [Recovered/Resolved]
  - Amnesia [Recovered/Resolved]
  - Skin ulcer [Not Recovered/Not Resolved]
  - Multiple sclerosis [Recovered/Resolved]
  - Dysarthria [Recovered/Resolved]

NARRATIVE: CASE EVENT DATE: 20240401
